FAERS Safety Report 9096795 (Version 2)
Quarter: 2013Q1

REPORT INFORMATION
  Report Type: Spontaneous
  Country: US (occurrence: None)
  Receive Date: 20130115
  Receipt Date: 20130205
  Transmission Date: 20140127
  Serious: Yes (Hospitalization)
  Sender: FDA-Public Use
  Company Number: 2013PROUSA02439

PATIENT
  Age: 58 Year
  Sex: Male
  Weight: 107.3 kg

DRUGS (11)
  1. PROVENGE (SIPULEUCEL-T) SUSPENSION [Suspect]
     Indication: PROSTATE CANCER METASTATIC
     Route: 042
     Dates: start: 20121130, end: 20121130
  2. CYCLOBENZAPRINE (CYCLOBENZAPRINE HYDROCHLORIDE) [Concomitant]
  3. HYDROCODONE BITARTRATE AND ACETAMINOPHEN (HYDROCODONE BITARTRATE, PARACETAMOL) [Concomitant]
  4. LISINOPRIL (LISINIOPRIL) [Concomitant]
  5. METFORMIN HCL (METFORMIN HYDROCHLORIDE) [Concomitant]
  6. PAROXETINE HCL (PAROXETINE HYDROCHLORIDE) [Concomitant]
  7. PRAVASTATIN SODIUM [Concomitant]
  8. CALCIUM + D (CALCIUM, ERGOCALCIFEROL) [Concomitant]
  9. VITAMIN B12 (CYANOCOBALAMIN) [Concomitant]
  10. NABUMETONE (NABUMETONE) [Concomitant]
  11. CINNAMON (CINNAMON) [Concomitant]

REACTIONS (2)
  - Deep vein thrombosis [None]
  - Jugular vein thrombosis [None]
